FAERS Safety Report 16518078 (Version 1)
Quarter: 2019Q3

REPORT INFORMATION
  Report Type: Spontaneous
  Country: CN (occurrence: CN)
  Receive Date: 20190702
  Receipt Date: 20190702
  Transmission Date: 20191004
  Serious: Yes (Hospitalization)
  Sender: FDA-Public Use
  Company Number: CN-BAXTER-2019BAX012612

PATIENT
  Age: 36 Year
  Sex: Female
  Weight: 40 kg

DRUGS (15)
  1. 5% GLUCOSE  INJECTION [Suspect]
     Active Substance: DEXTROSE
     Dosage: DAY 1 TO 4, MAID CHEMOTHERAPEUTIC PROTOCOL, DACARBAZINE + NS 10 ML + GS 250 ML
     Route: 041
     Dates: start: 20190405, end: 20190408
  2. DOXORUBICIN HYDROCHLORIDE. [Suspect]
     Active Substance: DOXORUBICIN HYDROCHLORIDE
     Indication: PERIPHERAL PRIMITIVE NEUROECTODERMAL BONE TUMOUR
     Dosage: LIPOSOME INJECTION, DAY1 TO 3, MAID CHEMOTHERAPEUTIC PROTOCOL, DOXORUBICIN HYDROCHLORIDE + GS 250 ML
     Route: 041
     Dates: start: 20190405, end: 20190407
  3. DACARBAZINE. [Suspect]
     Active Substance: DACARBAZINE
     Indication: PERIPHERAL PRIMITIVE NEUROECTODERMAL BONE TUMOUR
     Dosage: DAY 1 TO 4, MAID CHEMOTHERAPEUTIC PROTOCOL, DACARBAZINE + NS 10 ML + GS 250 ML
     Route: 041
     Dates: start: 20190405, end: 20190408
  4. 0.9% SODIUM CHLORIDE INJECTION [Suspect]
     Active Substance: SODIUM CHLORIDE
     Indication: MEDICATION DILUTION
     Dosage: DAY 1 TO 3, MAID CHEMOTHERAPEUTIC PROTOCOL, HOLOXAN+ NS
     Route: 041
     Dates: start: 20190405, end: 20190407
  5. 0.9% SODIUM CHLORIDE INJECTION [Suspect]
     Active Substance: SODIUM CHLORIDE
     Dosage: DAY 1 TO 4, MAID CHEMOTHERAPEUTIC PROTOCOL, DACARBAZINE + NS 10 ML + GS 250 ML
     Route: 041
     Dates: start: 20190405, end: 20190408
  6. CLAFORAN [Concomitant]
     Active Substance: CEFOTAXIME SODIUM
     Indication: ANTI-INFECTIVE THERAPY
     Route: 041
     Dates: start: 201904
  7. 5% GLUCOSE  INJECTION [Suspect]
     Active Substance: DEXTROSE
     Indication: MEDICATION DILUTION
     Dosage: DAY1 TO 3, MAID CHEMOTHERAPEUTIC PROTOCOL, DOXORUBICIN LIPOSOME + GS
     Route: 041
     Dates: start: 20190405, end: 20190407
  8. DOXORUBICIN HYDROCHLORIDE. [Suspect]
     Active Substance: DOXORUBICIN HYDROCHLORIDE
     Dosage: LIPOSOME INJECTION, DOSE RE-INTRODUCED, MAID CHEMOTHERAPEUTIC PROTOCOL, DOXORUBICIN + GS
     Route: 041
  9. 5% GLUCOSE  INJECTION [Suspect]
     Active Substance: DEXTROSE
     Dosage: DOSE RE-INTRODUCED, MAID CHEMOTHERAPEUTIC PROTOCOL, DOXORUBICIN LIPOSOME + GS
     Route: 041
  10. 5% GLUCOSE  INJECTION [Suspect]
     Active Substance: DEXTROSE
     Dosage: DOSE RE-INTRODUCED, MAID CHEMOTHERAPEUTIC PROTOCOL, DACARBAZINE + NS + GS
     Route: 041
  11. 0.9% SODIUM CHLORIDE INJECTION [Suspect]
     Active Substance: SODIUM CHLORIDE
     Dosage: DOSE RE-INTRODUCED, MAID CHEMOTHERAPEUTIC PROTOCOL, DACARBAZINE + NS + GS
     Route: 041
  12. DACARBAZINE. [Suspect]
     Active Substance: DACARBAZINE
     Dosage: DOSE RE-INTRODUCED, MAID CHEMOTHERAPEUTIC PROTOCOL, DACARBAZINE + NS + GS
     Route: 041
  13. HOLOXAN [Suspect]
     Active Substance: IFOSFAMIDE
     Dosage: DOSE RE-INTRODUCED, MAID CHEMOTHERAPEUTIC PROTOCOL, HOLOXAN + NS
     Route: 041
  14. 0.9% SODIUM CHLORIDE INJECTION [Suspect]
     Active Substance: SODIUM CHLORIDE
     Dosage: DOSE RE-INTRODUCED, MAID CHEMOTHERAPEUTIC PROTOCOL, HOLOXAN+ NS
     Route: 041
  15. HOLOXAN [Suspect]
     Active Substance: IFOSFAMIDE
     Indication: PERIPHERAL PRIMITIVE NEUROECTODERMAL BONE TUMOUR
     Dosage: DAY 1 TO 3, MAID CHEMOTHERAPEUTIC PROTOCOL, HOLOXAN + NS 500 ML
     Route: 041
     Dates: start: 20190405, end: 20190407

REACTIONS (1)
  - Bone marrow failure [Recovering/Resolving]

NARRATIVE: CASE EVENT DATE: 20190413
